FAERS Safety Report 8126032-8 (Version None)
Quarter: 2012Q1

REPORT INFORMATION
  Report Type: 
  Country: None (occurrence: None)
  Receive Date: 20120209
  Receipt Date: 20120206
  Transmission Date: 20120608
  Serious: Yes (Hospitalization, Disabling, Other)
  Sender: FDA-Public Use
  Company Number: HR-ROCHE-674413

PATIENT
  Sex: Male
  Weight: 65 kg

DRUGS (24)
  1. CARVEDILOL [Concomitant]
  2. LISINOPRIL [Concomitant]
  3. GLIQUIDONE [Concomitant]
  4. FERRIC SODIUM GLUCONATE [Concomitant]
     Dates: start: 20100913
  5. MIRCERA [Suspect]
     Dosage: LAST DOSE PRIOR TO SAE: 07 DECEMBER 2009
     Route: 058
  6. MIRCERA [Suspect]
     Dosage: LAST DOSE PRIOR TO EVENT: 09 JULY 2010
     Route: 058
  7. PANTOPRAZOLE [Concomitant]
  8. FUROSEMIDE [Concomitant]
  9. MOXONIDINE [Concomitant]
     Dates: start: 20120124
  10. AMLODIPINE [Concomitant]
  11. LISINOPRIL [Concomitant]
  12. MIRCERA [Suspect]
     Indication: NEPHROGENIC ANAEMIA
     Route: 058
  13. GLIQUIDONE [Concomitant]
  14. CALCIUM CARBONATE [Concomitant]
  15. SIMVASTATIN [Concomitant]
  16. MIRCERA [Suspect]
     Dosage: DATE OF LAST DOSE PRIOR TO SAE: 08 OCTOBER 2010
     Route: 058
  17. ISOSORBIDE MONONITRATE [Concomitant]
  18. CALCITRIOL [Concomitant]
  19. FOLIC ACID [Concomitant]
  20. LACIDIPINE [Concomitant]
  21. LACIDIPINE [Concomitant]
  22. ACETYLSALICYLIC ACID SRT [Concomitant]
  23. MIRCERA [Suspect]
     Dosage: LAST DOSE PRIOR TO SAE ON 09 DEC 2011
     Route: 058
  24. SIMVASTATIN [Concomitant]

REACTIONS (6)
  - FEMORAL ARTERY OCCLUSION [None]
  - DEVICE MALFUNCTION [None]
  - PERIPHERAL ARTERIAL OCCLUSIVE DISEASE [None]
  - ARTERIOVENOUS FISTULA THROMBOSIS [None]
  - ISCHAEMIC STROKE [None]
  - CAROTID ARTERY STENOSIS [None]
